FAERS Safety Report 5808034-7 (Version None)
Quarter: 2008Q3

REPORT INFORMATION
  Report Type: 
  Country: None (occurrence: None)
  Receive Date: 20080708
  Receipt Date: 20080701
  Transmission Date: 20090109
  Serious: Yes (Hospitalization, Other)
  Sender: FDA-Public Use
  Company Number: 2008SP003516

PATIENT
  Age: 27 Year
  Sex: Male
  Weight: 73 kg

DRUGS (2)
  1. PEGINTRON (PEGINTERFERON ALFA-2B) (PEGINTERFERON ALFA-2B) [Suspect]
     Indication: HEPATITIS C
     Dosage: 100 MCG; QW; SC; 100 MCG; QW
     Route: 058
     Dates: start: 20080216
  2. REBETOL [Suspect]
     Indication: HEPATITIS C
     Dosage: 1000 MG; QD; PO; 1000 MG; QD
     Route: 048
     Dates: start: 20080216

REACTIONS (4)
  - DIABETIC KETOACIDOSIS [None]
  - DYSPNOEA [None]
  - HYPOTENSION [None]
  - TYPE 1 DIABETES MELLITUS [None]
